FAERS Safety Report 18710486 (Version 1)
Quarter: 2021Q1

REPORT INFORMATION
  Report Type: Spontaneous
  Country: ES (occurrence: ES)
  Receive Date: 20210107
  Receipt Date: 20210107
  Transmission Date: 20210419
  Serious: Yes (Other)
  Sender: FDA-Public Use
  Company Number: ES-LUPIN PHARMACEUTICALS INC.-2020-11370

PATIENT
  Age: 74 Year
  Sex: Male

DRUGS (8)
  1. EPLERENONE. [Suspect]
     Active Substance: EPLERENONE
     Dosage: 12.5 MILLIGRAM, QD
     Route: 065
     Dates: start: 201803
  2. EPLERENONE. [Suspect]
     Active Substance: EPLERENONE
     Dosage: 25 MILLIGRAM, QD
     Route: 065
     Dates: start: 201804
  3. NEBIVOLOL. [Concomitant]
     Active Substance: NEBIVOLOL
     Indication: CARDIAC FAILURE
     Dosage: 10 MILLIGRAM, QD (INITIAL DOSAGE NOT STATED. UP?TITRATION OF NEBIVOLOL UP TO 10MG/DAY WAS SUCCESSFUL
     Route: 065
     Dates: start: 201707
  4. ENALAPRIL [Suspect]
     Active Substance: ENALAPRIL
     Indication: CARDIAC FAILURE
     Dosage: 10 MILLIGRAM, UNK
     Route: 065
     Dates: start: 201707, end: 201708
  5. RAMIPRIL. [Suspect]
     Active Substance: RAMIPRIL
     Dosage: 2.5 MILLIGRAM, QD (24 HR)
     Route: 065
     Dates: start: 201712
  6. RAMIPRIL. [Suspect]
     Active Substance: RAMIPRIL
     Dosage: 5 MILLIGRAM, QD (24 HR)
     Route: 065
     Dates: start: 201803
  7. EPLERENONE. [Suspect]
     Active Substance: EPLERENONE
     Indication: CARDIAC FAILURE
     Dosage: 25 MILLIGRAM, UNK
     Route: 065
     Dates: start: 201707, end: 201708
  8. RAMIPRIL. [Suspect]
     Active Substance: RAMIPRIL
     Indication: CARDIAC FAILURE
     Dosage: 1.25 MILLIGRAM, QD (24 HR)
     Route: 065
     Dates: start: 201709, end: 201710

REACTIONS (1)
  - Hyperkalaemia [Recovered/Resolved]

NARRATIVE: CASE EVENT DATE: 201708
